FAERS Safety Report 6810772-4 (Version None)
Quarter: 2010Q2

REPORT INFORMATION
  Report Type: 
  Country: None (occurrence: None)
  Receive Date: 20100630
  Receipt Date: 20100617
  Transmission Date: 20101027
  Serious: Yes (Hospitalization, Other)
  Sender: FDA-Public Use
  Company Number: PHHY2010US39948

PATIENT
  Sex: Male
  Weight: 107.8 kg

DRUGS (12)
  1. NEORAL [Suspect]
     Indication: LIVER TRANSPLANT
     Dosage: 125 MG IN MORNING AND 100 MG IN THE EVENING
     Route: 048
  2. NEORAL [Suspect]
     Dosage: 100 MG, BID
     Route: 048
  3. CELLCEPT [Suspect]
     Indication: LIVER TRANSPLANT
     Dosage: 1000 MG, BID
     Route: 048
  4. CELLCEPT [Suspect]
     Dosage: 500 MG, BID
     Route: 048
  5. LISINOPRIL [Concomitant]
     Dosage: 20 MG DAILY
     Route: 048
  6. LANTUS [Concomitant]
     Dosage: 33 U ONE DOSE IN THE EVENING
     Route: 058
  7. CIPRO [Concomitant]
  8. IODINE [Concomitant]
  9. REBETOL [Concomitant]
  10. LISINOPRIL AND HYDROCHLOROTHIAZIDE [Concomitant]
     Dosage: 40/25 MG DAILY
     Route: 048
  11. COREG [Concomitant]
     Dosage: 12.5 MG, BID
     Route: 048
  12. COLECALCIFEROL [Concomitant]
     Dosage: 2000 IU DAILY
     Route: 048

REACTIONS (15)
  - CORONARY ARTERIAL STENT INSERTION [None]
  - DIABETIC NEPHROPATHY [None]
  - FATIGUE [None]
  - HEART RATE INCREASED [None]
  - HEPATIC ENZYME INCREASED [None]
  - HEPATITIS C [None]
  - HYPERPARATHYROIDISM SECONDARY [None]
  - HYPERTENSION [None]
  - LIVER TRANSPLANT [None]
  - MYOCARDIAL INFARCTION [None]
  - NEPHROPATHY TOXIC [None]
  - OBESITY [None]
  - PROTEINURIA [None]
  - RENAL FAILURE CHRONIC [None]
  - TYPE 2 DIABETES MELLITUS [None]
